FAERS Safety Report 9934062 (Version 2)
Quarter: 2014Q1

REPORT INFORMATION
  Report Type: Spontaneous
  Country: US (occurrence: US)
  Receive Date: 20140228
  Receipt Date: 20140228
  Transmission Date: 20141002
  Serious: No
  Sender: FDA-Public Use
  Company Number: US-MYLANLABS-2013S1021885

PATIENT
  Age: 70 Year
  Sex: Female
  Weight: 90.72 kg

DRUGS (2)
  1. METFORMIN HYDROCHLORIDE TABLETS USP [Suspect]
     Indication: DIABETES MELLITUS
     Route: 048
     Dates: start: 2013, end: 20130923
  2. INSULIN [Concomitant]
     Indication: DIABETES MELLITUS
     Dosage: TAKEN FOR YEARS

REACTIONS (1)
  - Diarrhoea [Recovered/Resolved]
